FAERS Safety Report 4450876-7 (Version None)
Quarter: 2004Q3

REPORT INFORMATION
  Report Type: 
  Country: None (occurrence: None)
  Receive Date: 20040916
  Receipt Date: 20011016
  Transmission Date: 20050211
  Serious: Yes (Other)
  Sender: FDA-Public Use
  Company Number: US-BRISTOL-MYERS SQUIBB COMPANY-11536836

PATIENT
  Age: 31 Year
  Sex: Female

DRUGS (10)
  1. STADOL [Suspect]
     Indication: HEADACHE
     Route: 045
     Dates: start: 19960920, end: 20000201
  2. STADOL [Suspect]
  3. NAPROXEN [Concomitant]
  4. ULTRAM [Concomitant]
  5. METHOCARBAMOL [Concomitant]
  6. HYDROCODONE + ACETAMINOPHEN [Concomitant]
  7. PROPOXYPHENE NAPSYLATE [Concomitant]
  8. METOCLOPRAMIDE [Concomitant]
  9. PROMETHAZINE [Concomitant]
  10. BUTALBITAL + CAFFEINE + ACETAMINOPHEN [Concomitant]

REACTIONS (1)
  - DEPENDENCE [None]
